FAERS Safety Report 10949628 (Version 1)
Quarter: 2015Q1

REPORT INFORMATION
  Report Type: Spontaneous
  Country: US (occurrence: None)
  Receive Date: 20150323
  Receipt Date: 20150323
  Transmission Date: 20150721
  Serious: No
  Sender: FDA-Public Use
  Company Number: None

PATIENT
  Age: 63 Year
  Sex: Male
  Weight: 103.8 kg

DRUGS (1)
  1. TOFACITINIB [Suspect]
     Active Substance: TOFACITINIB
     Indication: RHEUMATOID ARTHRITIS
     Route: 048
     Dates: start: 20140819, end: 20141020

REACTIONS (2)
  - Rash [None]
  - Hypersensitivity [None]

NARRATIVE: CASE EVENT DATE: 20141020
